FAERS Safety Report 5957203-4 (Version None)
Quarter: 2008Q4

REPORT INFORMATION
  Report Type: 
  Country: None (occurrence: None)
  Receive Date: 20081118
  Receipt Date: 20081111
  Transmission Date: 20090506
  Serious: Yes (Other)
  Sender: FDA-Public Use
  Company Number: BH-PFIZER INC-2008095708

PATIENT
  Sex: Female

DRUGS (2)
  1. SOLU-CORTEF [Suspect]
     Indication: DRUG HYPERSENSITIVITY
  2. BENZYLPENICILLIN [Concomitant]

REACTIONS (7)
  - ANAPHYLACTOID REACTION [None]
  - FAECES DISCOLOURED [None]
  - GASTRIC ULCER PERFORATION [None]
  - NERVOUSNESS [None]
  - PALPITATIONS [None]
  - PANIC ATTACK [None]
  - WHITE BLOOD CELL COUNT INCREASED [None]
